FAERS Safety Report 5116929-5 (Version None)
Quarter: 2006Q3

REPORT INFORMATION
  Report Type: 
  Country: None (occurrence: None)
  Receive Date: 20060925
  Receipt Date: 20060907
  Transmission Date: 20061208
  Serious: Yes (Death)
  Sender: FDA-Public Use
  Company Number: S06-DEN-03800-01

PATIENT
  Age: 43 Year
  Sex: Female

DRUGS (4)
  1. LEXAPRO [Suspect]
     Dosage: 10 MG QD PO
     Route: 048
  2. ALPROX (ALPRAZOLAM) [Suspect]
     Dosage: 0.25 MG QD
  3. MIRTAZAPINE [Suspect]
     Dosage: 15 MG QD
  4. PROPRANOLOL [Suspect]
     Dosage: 40 MG QD

REACTIONS (1)
  - COMPLETED SUICIDE [None]
